FAERS Safety Report 21140266 (Version 2)
Quarter: 2022Q3

REPORT INFORMATION
  Report Type: Spontaneous
  Country: DE (occurrence: DE)
  Receive Date: 20220728
  Receipt Date: 20220803
  Transmission Date: 20221027
  Serious: Yes (Hospitalization, Other)
  Sender: FDA-Public Use
  Company Number: DE-BESINS-2018-06579

PATIENT
  Age: 31 Year
  Sex: Female

DRUGS (11)
  1. PROGESTERONE [Suspect]
     Active Substance: PROGESTERONE
     Indication: Assisted fertilisation
     Dosage: 100 MG (3X2) 100 MG
     Route: 065
  2. PROGESTERONE [Suspect]
     Active Substance: PROGESTERONE
     Dosage: 25 MILLIGRAM, QD
     Route: 065
  3. ORGALUTRAN [Suspect]
     Active Substance: GANIRELIX ACETATE
     Indication: Assisted fertilisation
     Dosage: UNK
     Route: 065
  4. PROGESTERONE [Suspect]
     Active Substance: PROGESTERONE
     Indication: Assisted fertilisation
     Dosage: 1 DF PER DAY (25 MG,1 IN 1 D)
     Route: 058
  5. CHORIOGONADOTROPIN ALFA [Suspect]
     Active Substance: CHORIOGONADOTROPIN ALFA
     Indication: Assisted fertilisation
     Dosage: 250 MICROGRAM
     Route: 065
  6. CHORIOGONADOTROPIN ALFA [Suspect]
     Active Substance: CHORIOGONADOTROPIN ALFA
     Dosage: 250 MG
     Route: 065
  7. GANIRELIX ACETATE [Suspect]
     Active Substance: GANIRELIX ACETATE
     Indication: Assisted fertilisation
     Dosage: UNK
     Route: 065
  8. FOLLITROPIN ALFA [Suspect]
     Active Substance: FOLLITROPIN ALFA
     Indication: Assisted fertilisation
     Dosage: 300 IU
     Route: 065
  9. FOLLITROPIN ALFA [Suspect]
     Active Substance: FOLLITROPIN ALFA
     Dosage: 300 IU
     Route: 065
  10. ENOXAPARIN SODIUM [Concomitant]
     Active Substance: ENOXAPARIN SODIUM
     Indication: Thrombosis prophylaxis
     Dosage: 1 DF PER DAY (CLEXANE 40) (1 IN 1D)
     Route: 058
     Dates: start: 20180907
  11. ASPIRIN [Concomitant]
     Active Substance: ASPIRIN
     Indication: Thrombosis prophylaxis
     Dosage: ONCE DAILY (100 MG,1 IN 1 D)
     Route: 048
     Dates: start: 20180907

REACTIONS (1)
  - Tubo-ovarian abscess [Recovered/Resolved]

NARRATIVE: CASE EVENT DATE: 20180910
